FAERS Safety Report 8545798-6 (Version None)
Quarter: 2012Q3

REPORT INFORMATION
  Report Type: 
  Country: None (occurrence: None)
  Receive Date: 20120727
  Receipt Date: 20120719
  Transmission Date: 20120928
  Serious: Yes (Other)
  Sender: FDA-Public Use
  Company Number: CN-BAXTER-2012BAX012462

PATIENT
  Sex: Male
  Weight: 90 kg

DRUGS (2)
  1. LIGUSTRAZINE [Suspect]
     Indication: CEREBRAL INFARCTION
     Route: 042
     Dates: start: 20110812, end: 20110812
  2. SODIUM CHLORIDE INJ [Suspect]
     Indication: CEREBRAL INFARCTION
     Route: 042
     Dates: start: 20110812, end: 20110812

REACTIONS (2)
  - PYREXIA [None]
  - ANAPHYLACTIC SHOCK [None]
